FAERS Safety Report 6969997-X (Version None)
Quarter: 2010Q3

REPORT INFORMATION
  Report Type: 
  Country: None (occurrence: None)
  Receive Date: 20100908
  Receipt Date: 20100827
  Transmission Date: 20110219
  Serious: Yes (Hospitalization)
  Sender: FDA-Public Use
  Company Number: JP-ELI_LILLY_AND_COMPANY-JP200912001318

PATIENT
  Sex: Female

DRUGS (10)
  1. GEMZAR [Suspect]
     Indication: GALLBLADDER CANCER STAGE IV
     Dosage: 800 MG, OTHER
     Route: 042
     Dates: start: 20081127, end: 20090319
  2. TS 1 /JPN/ [Concomitant]
     Indication: GALLBLADDER CANCER STAGE IV
     Dosage: 80 MG, OTHER
     Route: 048
     Dates: start: 20090108, end: 20090528
  3. PRIMPERAN TAB [Concomitant]
     Dosage: 5 MG, 3/D
     Route: 048
     Dates: start: 20090312
  4. URSO 250 [Concomitant]
     Dosage: 100 MG, 3/D
     Route: 048
     Dates: start: 20100312
  5. TAKEPRON [Concomitant]
     Dosage: 15 MG, EACH MORNING
     Dates: start: 20090312
  6. MUCOSTA [Concomitant]
     Dosage: 100 MG, 3/D
     Route: 048
     Dates: start: 20090312
  7. PURSENNID [Concomitant]
     Dosage: 2 D/F, DAILY (1/D)
     Route: 048
     Dates: start: 20090312
  8. GOODMIN [Concomitant]
     Dosage: 0.25 MG, DAILY (1/D)
     Route: 048
     Dates: start: 20090312
  9. ADALAT CR /SCH/ [Concomitant]
     Indication: HYPERTENSION
     Dosage: 40 MG, UNK
     Route: 048
  10. LASIX [Concomitant]
     Indication: CARDIAC FAILURE CONGESTIVE
     Dosage: 20 MG, UNK
     Route: 048

REACTIONS (3)
  - NEUTROPHIL COUNT DECREASED [None]
  - THROMBOTIC MICROANGIOPATHY [None]
  - WHITE BLOOD CELL COUNT DECREASED [None]
